FAERS Safety Report 13285188 (Version 1)
Quarter: 2017Q1

REPORT INFORMATION
  Report Type: Report from Study
  Country: ES (occurrence: ES)
  Receive Date: 20170301
  Receipt Date: 20170301
  Transmission Date: 20170428
  Serious: Yes (Death, Hospitalization)
  Sender: FDA-Public Use
  Company Number: ES-PFIZER INC-2017084247

PATIENT
  Age: 56 Year
  Sex: Male

DRUGS (3)
  1. TORSEMIDE. [Suspect]
     Active Substance: TORSEMIDE
     Indication: ASCITES
     Dosage: UNK
  2. SPIRONOLACTONE. [Suspect]
     Active Substance: SPIRONOLACTONE
     Indication: ASCITES
     Dosage: 100 MG, DAILY
  3. PARACETAMOL [Suspect]
     Active Substance: ACETAMINOPHEN
     Indication: ASCITES
     Dosage: UNK

REACTIONS (1)
  - Agranulocytosis [Fatal]
